FAERS Safety Report 7083171-0 (Version None)
Quarter: 2010Q4

REPORT INFORMATION
  Report Type: 
  Country: None (occurrence: None)
  Receive Date: 20101026
  Receipt Date: 20101017
  Transmission Date: 20110411
  Serious: Yes (Hospitalization)
  Sender: FDA-Public Use
  Company Number: 2010EU005462

PATIENT
  Age: 20 Year
  Sex: Female

DRUGS (3)
  1. TACROLIMUS [Suspect]
     Indication: RENAL TRANSPLANT
     Dosage: 7 MG, D, ORAL
     Route: 048
  2. MYCOPHENOLATE MOFETIL [Suspect]
     Indication: RENAL TRANSPLANT
     Dosage: 1 G, D, ORAL
     Route: 048
  3. CORTICOSTEROIDS [Suspect]
     Indication: RENAL TRANSPLANT
     Dosage: 17.5 MG, D, ORAL
     Route: 048

REACTIONS (1)
  - APLASIA PURE RED CELL [None]
